FAERS Safety Report 4861574-X (Version None)
Quarter: 2005Q4

REPORT INFORMATION
  Report Type: 
  Country: None (occurrence: None)
  Receive Date: 20051220
  Receipt Date: 20051209
  Transmission Date: 20060501
  Serious: Yes (Other)
  Sender: FDA-Public Use
  Company Number: CA-BRISTOL-MYERS SQUIBB COMPANY-13217948

PATIENT
  Age: 90 Year
  Sex: Female

DRUGS (8)
  1. TEQUIN [Suspect]
     Route: 048
  2. COMBIVENT [Concomitant]
     Route: 055
  3. COUMADIN [Concomitant]
  4. FUROSEMIDE [Concomitant]
  5. GLYBURIDE [Concomitant]
  6. METFORMIN HCL [Concomitant]
  7. RAMIPRIL [Concomitant]
  8. TYLENOL W/ CODEINE NO. 3 [Concomitant]

REACTIONS (2)
  - HYPERGLYCAEMIA [None]
  - PNEUMONIA [None]
